FAERS Safety Report 4463164-X (Version None)
Quarter: 2004Q3

REPORT INFORMATION
  Report Type: 
  Country: None (occurrence: None)
  Receive Date: 20040930
  Receipt Date: 20030929
  Transmission Date: 20050211
  Serious: Yes (Hospitalization, Other)
  Sender: FDA-Public Use
  Company Number: US-MERCK-0309USA03247

PATIENT
  Age: 46 Year
  Sex: Female
  Weight: 91 kg

DRUGS (7)
  1. ASPIRIN [Concomitant]
     Route: 065
  2. CELEBREX [Suspect]
     Route: 065
  3. CARDIZEM CD [Concomitant]
     Route: 065
  4. ZESTRIL [Concomitant]
     Route: 065
  5. ZESTRIL [Concomitant]
     Route: 065
  6. NITROGLYCERIN [Concomitant]
     Route: 065
  7. VIOXX [Suspect]
     Route: 048

REACTIONS (13)
  - ANGINA UNSTABLE [None]
  - ARTHRITIS [None]
  - BLOOD CREATININE INCREASED [None]
  - CARDIAC ARREST [None]
  - CORONARY ARTERY OCCLUSION [None]
  - COUGH [None]
  - GASTROOESOPHAGEAL REFLUX DISEASE [None]
  - HYPERLIPIDAEMIA [None]
  - HYPOKALAEMIA [None]
  - MYOCARDIAL INFARCTION [None]
  - PALPITATIONS [None]
  - STRESS SYMPTOMS [None]
  - THROMBOCYTOPENIA [None]
